FAERS Safety Report 5751434-4 (Version None)
Quarter: 2008Q2

REPORT INFORMATION
  Report Type: 
  Country: None (occurrence: None)
  Receive Date: 20080528
  Receipt Date: 20080522
  Transmission Date: 20081010
  Serious: Yes (Other)
  Sender: FDA-Public Use
  Company Number: JP-ALLERGAN-0806183US

PATIENT
  Sex: Male

DRUGS (3)
  1. ALESION TABLET [Suspect]
     Indication: SEASONAL ALLERGY
     Dosage: 10 MG, QD
     Route: 048
     Dates: start: 20080418, end: 20080420
  2. ALESION TABLET [Suspect]
     Dosage: 20 MG, QD
     Route: 048
     Dates: start: 20080421, end: 20080423
  3. ALEVIATIN [Concomitant]

REACTIONS (1)
  - EPILEPSY [None]
